FAERS Safety Report 9020734 (Version 1)
Quarter: 2013Q1

REPORT INFORMATION
  Report Type: Report from Study
  Country: US (occurrence: US)
  Receive Date: 20130119
  Receipt Date: 20130119
  Transmission Date: 20140127
  Serious: Yes (Other)
  Sender: FDA-Public Use
  Company Number: US-US-EMD SERONO, INC.-7187328

PATIENT
  Sex: Female

DRUGS (1)
  1. REBIF [Suspect]
     Indication: MULTIPLE SCLEROSIS
     Route: 058
     Dates: start: 20120217

REACTIONS (7)
  - Meniscus injury [Recovering/Resolving]
  - Meniere^s disease [Recovering/Resolving]
  - Multiple sclerosis [Recovering/Resolving]
  - Musculoskeletal discomfort [Not Recovered/Not Resolved]
  - Influenza like illness [Recovering/Resolving]
  - Injection site reaction [Not Recovered/Not Resolved]
  - Injection site bruising [Not Recovered/Not Resolved]
